FAERS Safety Report 24873067 (Version 1)
Quarter: 2025Q1

REPORT INFORMATION
  Report Type: Spontaneous
  Country: SI (occurrence: SI)
  Receive Date: 20250122
  Receipt Date: 20250122
  Transmission Date: 20250409
  Serious: Yes (Other)
  Sender: ACCORD
  Company Number: None

PATIENT
  Age: 55 Year
  Sex: Female

DRUGS (9)
  1. IRINOTECAN [Suspect]
     Active Substance: IRINOTECAN
     Indication: Colon cancer
     Dates: start: 20241126, end: 20241126
  2. TELMISARTAN [Concomitant]
     Active Substance: TELMISARTAN
     Dosage: STRENGTH: 40 MG, 1 TBL IN THE MORNING
  3. AMLOPIN [Concomitant]
  4. EUTHYROX [Concomitant]
     Active Substance: LEVOTHYROXINE SODIUM
     Dosage: STRENGTH: 25 MICROGRAM, 1 TBL IN THE MORNING
  5. Spasmex [Concomitant]
  6. TORECAN [Concomitant]
     Active Substance: THIETHYLPERAZINE MALATE
  7. LOPERAMIDE HYDROCHLORIDE [Concomitant]
     Active Substance: LOPERAMIDE HYDROCHLORIDE
  8. LINOLA UREA [Concomitant]
  9. CAPECITABINE [Concomitant]
     Active Substance: CAPECITABINE
     Indication: Chemotherapy

REACTIONS (1)
  - Infusion related reaction [Recovering/Resolving]

NARRATIVE: CASE EVENT DATE: 20241126
